FAERS Safety Report 6781258-0 (Version None)
Quarter: 2010Q2

REPORT INFORMATION
  Report Type: 
  Country: None (occurrence: None)
  Receive Date: 20100621
  Receipt Date: 20100607
  Transmission Date: 20101027
  Serious: Yes (Hospitalization, Other)
  Sender: FDA-Public Use
  Company Number: PHEH2005US06164

PATIENT
  Sex: Male

DRUGS (27)
  1. ELIDEL [Suspect]
     Indication: ECZEMA
     Dosage: TWICE DAILY
     Route: 061
     Dates: start: 20021001, end: 20041001
  2. ENALAPRIL MALEATE [Concomitant]
  3. ATENOLOL [Concomitant]
  4. NORVASC [Concomitant]
  5. CLONIDINE [Concomitant]
  6. PREVACID [Concomitant]
  7. FLUOROURACIL [Concomitant]
  8. VANCOMYCIN [Concomitant]
  9. DIFLUCAN [Concomitant]
  10. FORTAZ [Concomitant]
  11. FLAGYL [Concomitant]
  12. REGLAN [Concomitant]
  13. PENTAMIDINE ISETHIONATE [Concomitant]
  14. HEPARIN [Concomitant]
  15. BENADRYL ^WARNER-LAMBERT^               /USA/ [Concomitant]
  16. TYLENOL [Concomitant]
  17. MAALOX                                  /USA/ [Concomitant]
  18. DILTIAZEM [Concomitant]
  19. ZOFRAN [Concomitant]
  20. BACTRIM [Concomitant]
  21. NEUPOGEN [Concomitant]
  22. MOTRIN [Concomitant]
  23. RANITIDINE [Concomitant]
  24. PROTONIX [Concomitant]
  25. MAGNESIUM [Concomitant]
  26. REGLAN [Concomitant]
  27. PERIACTIN [Concomitant]

REACTIONS (96)
  - ABDOMINAL DISTENSION [None]
  - ABDOMINAL PAIN UPPER [None]
  - ADENOIDITIS [None]
  - AGRANULOCYTOSIS [None]
  - ALOPECIA [None]
  - ALPHA 1 FOETOPROTEIN INCREASED [None]
  - ANAEMIA [None]
  - APLASTIC ANAEMIA [None]
  - APPENDICECTOMY [None]
  - ARTHRALGIA [None]
  - ASTHENIA [None]
  - ASTIGMATISM [None]
  - BLINDNESS TRANSIENT [None]
  - BLOOD PRESSURE DECREASED [None]
  - BONE CYST [None]
  - BONE NEOPLASM [None]
  - BRONCHIOLITIS [None]
  - BRONCHITIS [None]
  - CARDIAC HYPERTROPHY [None]
  - CENTRAL VENOUS CATHETERISATION [None]
  - CERUMEN IMPACTION [None]
  - COLOUR BLINDNESS [None]
  - CONJUNCTIVITIS [None]
  - CONSTIPATION [None]
  - COUGH [None]
  - CREATININE URINE DECREASED [None]
  - DEAFNESS [None]
  - DEAFNESS NEUROSENSORY [None]
  - DEHYDRATION [None]
  - DERMATITIS [None]
  - DIARRHOEA [None]
  - DRY SKIN [None]
  - ENURESIS [None]
  - EYE IRRITATION [None]
  - EYELID PTOSIS [None]
  - FALL [None]
  - FLATULENCE [None]
  - GAIT DISTURBANCE [None]
  - GASTRITIS [None]
  - GASTROENTERITIS [None]
  - GASTROOESOPHAGEAL REFLUX DISEASE [None]
  - HAEMATEMESIS [None]
  - HAEMATOCRIT DECREASED [None]
  - HAIR GROWTH ABNORMAL [None]
  - HEART RATE INCREASED [None]
  - HEPATECTOMY [None]
  - HEPATIC NEOPLASM [None]
  - HEPATOBLASTOMA [None]
  - HEPATOMEGALY [None]
  - HYPERTENSION [None]
  - HYPERTRICHOSIS [None]
  - HYPONATRAEMIA [None]
  - IMPAIRED GASTRIC EMPTYING [None]
  - IMPETIGO [None]
  - INFLUENZA [None]
  - LEUKOCYTOSIS [None]
  - LIPASE INCREASED [None]
  - LIVER OPERATION [None]
  - LUNG DISORDER [None]
  - LUNG NEOPLASM [None]
  - MYCOPLASMA INFECTION [None]
  - NASAL CONGESTION [None]
  - NASOPHARYNGITIS [None]
  - NAUSEA [None]
  - NEUROPATHY PERIPHERAL [None]
  - NEUTROPENIA [None]
  - NIGHT BLINDNESS [None]
  - NIGHT SWEATS [None]
  - OCULAR HYPERAEMIA [None]
  - PANCREATITIS [None]
  - PANCYTOPENIA [None]
  - PERICARDIAL EFFUSION [None]
  - PHARYNGITIS [None]
  - PNEUMONIA PNEUMOCOCCAL [None]
  - PRECOCIOUS PUBERTY [None]
  - PROTEINURIA [None]
  - PYREXIA [None]
  - RENAL TUBULAR DISORDER [None]
  - RETINAL ANOMALY CONGENITAL [None]
  - RETINITIS PIGMENTOSA [None]
  - RHINITIS [None]
  - RHINORRHOEA [None]
  - ROTAVIRUS INFECTION [None]
  - SINUSITIS [None]
  - SKIN ODOUR ABNORMAL [None]
  - SOMNOLENCE [None]
  - SPEECH DISORDER [None]
  - SPEECH REHABILITATION [None]
  - THROMBOCYTOPENIA [None]
  - UPPER RESPIRATORY TRACT INFECTION [None]
  - URINE OSMOLARITY DECREASED [None]
  - URINE URIC ACID DECREASED [None]
  - VISUAL IMPAIRMENT [None]
  - VOMITING [None]
  - WEIGHT DECREASED [None]
  - WOUND INFECTION PSEUDOMONAS [None]
